FAERS Safety Report 4949482-7 (Version None)
Quarter: 2006Q1

REPORT INFORMATION
  Report Type: 
  Country: None (occurrence: None)
  Receive Date: 20060315
  Receipt Date: 20060301
  Transmission Date: 20060701
  Serious: Yes (Death, Other)
  Sender: FDA-Public Use
  Company Number: US200603000609

PATIENT
  Sex: Male

DRUGS (3)
  1. XIGRIS [Suspect]
     Indication: SEPSIS
     Dosage: INTRAVENOUS
     Route: 042
  2. LEVOPHED [Concomitant]
  3. EPINEPHRINE [Concomitant]

REACTIONS (3)
  - THERAPY NON-RESPONDER [None]
  - THROMBOCYTOPENIA [None]
  - UPPER GASTROINTESTINAL HAEMORRHAGE [None]
